FAERS Safety Report 4877170-4 (Version None)
Quarter: 2005Q4

REPORT INFORMATION
  Report Type: 
  Country: None (occurrence: None)
  Receive Date: 20051206
  Receipt Date: 20051003
  Transmission Date: 20060501
  Serious: No
  Sender: FDA-Public Use
  Company Number: USA0510109878

PATIENT
  Age: 71 Year
  Sex: Female

DRUGS (6)
  1. CYMBALTA [Suspect]
     Indication: PAIN
     Dosage: 30 MG
     Dates: start: 20050930, end: 20051001
  2. PREDNISONE [Concomitant]
  3. QUINACRINE (MEPACRINE HYDROCHLORIDE) [Concomitant]
  4. SALAGEN (PILOCAPINE HYDROCHLORIDE) [Concomitant]
  5. CELEBREX [Concomitant]
  6. VALIUM [Concomitant]

REACTIONS (5)
  - CHILLS [None]
  - GASTRITIS [None]
  - INSOMNIA [None]
  - IRRITABLE BOWEL SYNDROME [None]
  - TREMOR [None]
